FAERS Safety Report 6630336-5 (Version None)
Quarter: 2010Q1

REPORT INFORMATION
  Report Type: 
  Country: None (occurrence: None)
  Receive Date: 20100311
  Receipt Date: 20090615
  Transmission Date: 20100710
  Serious: No
  Sender: FDA-Public Use
  Company Number: US-BIOGENIDEC-2009BI018253

PATIENT
  Age: 47 Year
  Sex: Female

DRUGS (4)
  1. AVONEX [Suspect]
     Indication: MULTIPLE SCLEROSIS
     Route: 030
     Dates: start: 20021201, end: 20030101
  2. AVONEX [Suspect]
     Route: 030
     Dates: start: 20030101
  3. TYLENOL-500 [Concomitant]
     Indication: PREMEDICATION
     Route: 048
  4. IBUPROFEN [Concomitant]
     Indication: PREMEDICATION
     Route: 048

REACTIONS (3)
  - CERVIX DISORDER [None]
  - HEADACHE [None]
  - MENORRHAGIA [None]
